FAERS Safety Report 9079753 (Version 4)
Quarter: 2013Q1

REPORT INFORMATION
  Report Type: Spontaneous
  Country: FR (occurrence: FR)
  Receive Date: 20130130
  Receipt Date: 20130327
  Transmission Date: 20140127
  Serious: Yes (Hospitalization, Disabling, Other)
  Sender: FDA-Public Use
  Company Number: FR-009507513-1301FRA012358

PATIENT
  Age: 62 Year
  Sex: Male
  Weight: 80.2 kg

DRUGS (9)
  1. VELMETIA [Suspect]
     Indication: TYPE 2 DIABETES MELLITUS
     Dosage: 1 DF, BID
     Dates: start: 20100612
  2. PREVISCAN [Concomitant]
     Indication: THROMBOPHLEBITIS
     Dosage: UNK
     Dates: start: 200809, end: 201207
  3. COAPROVEL [Concomitant]
     Indication: HYPERTENSION
     Dosage: 1 DF, QD
     Dates: start: 2004, end: 201209
  4. MONO-TILDIEM [Concomitant]
     Indication: HYPERTENSION
     Dosage: 300 MG, QD
     Dates: start: 2004, end: 201209
  5. ALLOPURINOL [Concomitant]
     Indication: CALCULUS URINARY
     Dosage: 100 MG, QD
     Dates: start: 2004
  6. DAONIL [Concomitant]
     Indication: TYPE 2 DIABETES MELLITUS
     Dosage: 5 MG, TID
     Dates: start: 201012
  7. AMAREL [Concomitant]
     Indication: TYPE 2 DIABETES MELLITUS
     Dosage: UNK
     Dates: start: 200408, end: 201012
  8. LEVEMIR [Concomitant]
     Indication: INSULIN-REQUIRING TYPE 2 DIABETES MELLITUS
     Dosage: 1 DF, QD
     Route: 058
     Dates: start: 201112
  9. AVANDAMET [Concomitant]
     Indication: TYPE 2 DIABETES MELLITUS
     Dosage: 2 DF, UNK
     Dates: start: 200909, end: 20100612

REACTIONS (1)
  - Pancreatic carcinoma metastatic [Unknown]
